FAERS Safety Report 11727083 (Version 4)
Quarter: 2016Q1

REPORT INFORMATION
  Report Type: Spontaneous
  Country: JP (occurrence: JP)
  Receive Date: 20151112
  Receipt Date: 20160218
  Transmission Date: 20160525
  Serious: Yes (Death)
  Sender: FDA-Public Use
  Company Number: JP-ROCHE-1660496

PATIENT
  Age: 82 Year
  Sex: Male
  Weight: 51 kg

DRUGS (8)
  1. HORIZON [Concomitant]
     Active Substance: DIAZEPAM
     Indication: SEDATION
     Route: 042
     Dates: start: 20150324, end: 20150324
  2. UROKINASE [Suspect]
     Active Substance: UROKINASE
     Indication: EMBOLIC STROKE
     Route: 013
     Dates: start: 20150324, end: 20150324
  3. SOSEGON [Concomitant]
     Active Substance: PENTAZOCINE
     Indication: SEDATION
     Route: 042
     Dates: start: 20150324, end: 20150324
  4. HEPARIN SODIUM. [Concomitant]
     Active Substance: HEPARIN SODIUM
     Indication: ANTICOAGULANT THERAPY
     Route: 042
     Dates: start: 20150324, end: 20150324
  5. EDARAVONE [Concomitant]
     Active Substance: EDARAVONE
     Indication: CEREBRAL INFARCTION
     Route: 041
     Dates: start: 20150324, end: 20150330
  6. ACTIVACIN [Suspect]
     Active Substance: ALTEPLASE
     Indication: CEREBRAL ARTERY OCCLUSION
     Route: 042
     Dates: start: 20150324, end: 20150324
  7. ACTIVACIN [Suspect]
     Active Substance: ALTEPLASE
     Route: 041
  8. NICARDIPINE HYDROCHLORIDE. [Concomitant]
     Active Substance: NICARDIPINE HYDROCHLORIDE
     Indication: HYPERTENSION
     Route: 042
     Dates: start: 20150324, end: 20150324

REACTIONS (2)
  - Cerebral haemorrhage [Fatal]
  - Pneumonia aspiration [Fatal]

NARRATIVE: CASE EVENT DATE: 20150324
